FAERS Safety Report 9783688 (Version 1)
Quarter: 2013Q4

REPORT INFORMATION
  Report Type: Spontaneous
  Country: CA (occurrence: None)
  Receive Date: 20131223
  Receipt Date: 20131223
  Transmission Date: 20140711
  Serious: Yes (Hospitalization)
  Sender: FDA-Public Use
  Company Number: CC400203541

PATIENT
  Age: 55 Year
  Sex: Female

DRUGS (2)
  1. CEFTAZIDIME [Suspect]
     Indication: MENINGITIS BACTERIAL
  2. VANCOMYCIN [Concomitant]

REACTIONS (1)
  - Drug reaction with eosinophilia and systemic symptoms [None]
